FAERS Safety Report 4502952-8 (Version None)
Quarter: 2004Q4

REPORT INFORMATION
  Report Type: 
  Country: None (occurrence: None)
  Receive Date: 20041117
  Receipt Date: 20040929
  Transmission Date: 20050328
  Serious: Yes (Disabling)
  Sender: FDA-Public Use
  Company Number: 200413058JP

PATIENT
  Age: 60 Year
  Sex: Male
  Weight: 62 kg

DRUGS (8)
  1. ARAVA [Suspect]
     Route: 048
     Dates: start: 20040318
  2. NEUROTROPIN [Concomitant]
     Route: 048
  3. NAIXAN [Concomitant]
     Route: 048
  4. PREDONINE [Concomitant]
     Route: 048
  5. MAGNESIUM OXIDE [Concomitant]
     Indication: CONSTIPATION
     Route: 048
  6. MAGNESIUM OXIDE [Concomitant]
     Indication: DIABETES MELLITUS NON-INSULIN-DEPENDENT
     Route: 048
  7. HUMACART-N [Concomitant]
     Route: 051
     Dates: start: 20040919, end: 20040918
  8. HUMACART-N [Concomitant]
     Route: 051
     Dates: start: 20040519, end: 20040918

REACTIONS (7)
  - DYSPNOEA [None]
  - DYSSTASIA [None]
  - FEELING ABNORMAL [None]
  - GUILLAIN-BARRE SYNDROME [None]
  - HYPOAESTHESIA [None]
  - MUSCULAR WEAKNESS [None]
  - SENSORY LOSS [None]
